FAERS Safety Report 25439930 (Version 2)
Quarter: 2025Q3

REPORT INFORMATION
  Report Type: Spontaneous
  Country: EU (occurrence: EU)
  Receive Date: 20250616
  Receipt Date: 20250724
  Transmission Date: 20251020
  Serious: Yes (Death, Life-Threatening, Hospitalization, Other)
  Sender: MERCK SHARP & DOHME LLC
  Company Number: EU-009507513-2295522

PATIENT
  Sex: Female
  Weight: 75 kg

DRUGS (7)
  1. KEYTRUDA [Suspect]
     Active Substance: PEMBROLIZUMAB
     Indication: Triple negative breast cancer
     Dosage: 4X
     Route: 042
     Dates: start: 20250313
  2. KEYTRUDA [Suspect]
     Active Substance: PEMBROLIZUMAB
     Indication: Triple negative breast cancer
     Route: 042
     Dates: start: 2025, end: 2025
  3. KEYTRUDA [Suspect]
     Active Substance: PEMBROLIZUMAB
     Indication: Triple negative breast cancer
     Route: 042
     Dates: start: 2025, end: 20250522
  4. EPIRUBICIN [Concomitant]
     Active Substance: EPIRUBICIN
     Indication: Triple negative breast cancer
     Dosage: 4XEC
     Dates: start: 20250220
  5. CYCLOPHOSPHAMIDE [Concomitant]
     Active Substance: CYCLOPHOSPHAMIDE
     Indication: Triple negative breast cancer
     Dosage: 4XEC
     Dates: start: 20250220
  6. CARBOPLATIN [Concomitant]
     Active Substance: CARBOPLATIN
     Indication: Triple negative breast cancer
     Dosage: AUC 1.5?RECEIVED ONCE/12 CYCLES
     Dates: start: 20250220
  7. PACLITAXEL [Concomitant]
     Active Substance: PACLITAXEL
     Indication: Triple negative breast cancer
     Dosage: RECEIVED ONCE/12 CYCLES
     Dates: start: 20250220

REACTIONS (8)
  - Cardiopulmonary failure [Fatal]
  - Meningoencephalitis viral [Fatal]
  - Chronic lymphocytic inflammation with pontine perivascular enhancement responsive to steroids [Not Recovered/Not Resolved]
  - Anaemia [Unknown]
  - Febrile neutropenia [Unknown]
  - Pneumonitis [Unknown]
  - Pneumonia [Unknown]
  - Superinfection bacterial [Fatal]

NARRATIVE: CASE EVENT DATE: 20250101
